FAERS Safety Report 11506806 (Version 1)
Quarter: 2015Q3

REPORT INFORMATION
  Report Type: Spontaneous
  Country: IN (occurrence: None)
  Receive Date: 20150914
  Receipt Date: 20150914
  Transmission Date: 20151125
  Serious: Yes (Disabling)
  Sender: FDA-Public Use
  Company Number: None

PATIENT
  Age: 24 Year
  Sex: Male
  Weight: 85 kg

DRUGS (1)
  1. T- HEXY 5 [Suspect]
     Active Substance: TRIHEXYPHENIDYL
     Indication: SCHIZOPHRENIA
     Route: 048

REACTIONS (5)
  - Drug administration error [None]
  - Erectile dysfunction [None]
  - Social problem [None]
  - Activities of daily living impaired [None]
  - Quality of life decreased [None]
